FAERS Safety Report 8423602-4 (Version None)
Quarter: 2012Q2

REPORT INFORMATION
  Report Type: 
  Country: None (occurrence: None)
  Receive Date: 20120608
  Receipt Date: 20120605
  Transmission Date: 20120825
  Serious: No
  Sender: FDA-Public Use
  Company Number: US-ASTRAZENECA-2012SE37688

PATIENT
  Age: 63 Year
  Sex: Female
  Weight: 77.1 kg

DRUGS (3)
  1. ASPIRIN [Concomitant]
  2. CRESTOR [Suspect]
     Indication: ARTERIOSCLEROSIS
     Route: 048
  3. LISINOPRIL [Concomitant]
     Route: 048

REACTIONS (1)
  - ALOPECIA [None]
